FAERS Safety Report 11119596 (Version 2)
Quarter: 2015Q3

REPORT INFORMATION
  Report Type: Report from Study
  Country: GB (occurrence: GB)
  Receive Date: 20150518
  Receipt Date: 20150715
  Transmission Date: 20151125
  Serious: Yes (Other)
  Sender: FDA-Public Use
  Company Number: GB-GLAXOSMITHKLINE-GB2015GSK063908

PATIENT
  Age: 51 Year
  Sex: Female
  Weight: 75 kg

DRUGS (4)
  1. TRAMETINIB [Suspect]
     Active Substance: TRAMETINIB
     Indication: METASTATIC MALIGNANT MELANOMA
     Dosage: 2 MG, QD
     Dates: start: 20150318, end: 20150323
  2. TRAMETINIB [Suspect]
     Active Substance: TRAMETINIB
     Dosage: 2 UNK, UNK
     Dates: start: 20150419, end: 20150422
  3. DABRAFENIB [Suspect]
     Active Substance: DABRAFENIB
     Indication: METASTATIC MALIGNANT MELANOMA
     Dosage: 100 MG, BID
     Dates: start: 20150318, end: 20150323
  4. DABRAFENIB [Suspect]
     Active Substance: DABRAFENIB
     Dosage: UNK
     Dates: start: 20150419, end: 20150422

REACTIONS (2)
  - Neutropenia [Unknown]
  - Neutropenia [Recovered/Resolved]

NARRATIVE: CASE EVENT DATE: 20150318
